FAERS Safety Report 8297982-7 (Version None)
Quarter: 2012Q2

REPORT INFORMATION
  Report Type: 
  Country: None (occurrence: None)
  Receive Date: 20120419
  Receipt Date: 20120411
  Transmission Date: 20120825
  Serious: Yes (Hospitalization)
  Sender: FDA-Public Use
  Company Number: US-GENZYME-THYM-1003221

PATIENT
  Sex: Male
  Weight: 83.92 kg

DRUGS (28)
  1. COREG [Concomitant]
     Indication: PRODUCT USED FOR UNKNOWN INDICATION
     Dosage: 25 MG, TWO TIMES DAILY WITH MEALS
     Route: 048
     Dates: start: 20100910
  2. PHENERGAN HCL [Concomitant]
     Indication: INFLUENZA
     Dosage: 12.5 MG, ONCE
     Route: 042
     Dates: start: 20110128, end: 20110128
  3. NEXIUM [Concomitant]
     Dosage: 40 MG, QD
     Route: 042
     Dates: start: 20110128, end: 20110131
  4. COREG [Concomitant]
     Dosage: 25 MG, BID
     Route: 048
     Dates: start: 20110128, end: 20110131
  5. DELTASONE [Concomitant]
     Indication: PRODUCT USED FOR UNKNOWN INDICATION
     Dosage: 5 MG, BY MOUTH EVERY MORNING
     Route: 048
     Dates: start: 20110131, end: 20110131
  6. MYCOPHENOLATE MOFETIL (CELLCEPT) [Concomitant]
     Indication: PRODUCT USED FOR UNKNOWN INDICATION
     Dosage: 1000 MG, BID
     Route: 048
     Dates: start: 20110131, end: 20110131
  7. ZOFRAN [Concomitant]
     Indication: INFLUENZA
     Dosage: 4 MG, PRN
     Route: 042
     Dates: start: 20110128, end: 20110128
  8. SENSIPAR [Concomitant]
     Indication: PRODUCT USED FOR UNKNOWN INDICATION
     Dosage: 30 MG, BY MOUTH NIGHTLY
     Route: 048
     Dates: start: 20110128
  9. ZOCOR [Concomitant]
     Indication: PRODUCT USED FOR UNKNOWN INDICATION
     Dosage: 20 MG, BY MOUTH NIGHTLY
     Route: 048
  10. PROGRAF [Concomitant]
     Indication: PRODUCT USED FOR UNKNOWN INDICATION
     Dosage: 6 MG, ONCE
     Route: 048
     Dates: start: 20110129, end: 20110131
  11. MORPHINE [Concomitant]
     Indication: PRODUCT USED FOR UNKNOWN INDICATION
     Dosage: 4 MG, PRN
     Route: 042
     Dates: start: 20110128, end: 20110128
  12. SODIUM CHLORIDE [Concomitant]
     Dosage: 200 ML/HR, CONTINOUS
     Route: 042
     Dates: start: 20110128, end: 20110131
  13. THYMOGLOBULIN [Suspect]
     Indication: TRANSPLANT REJECTION
     Dosage: UNK
     Route: 042
     Dates: start: 20100831, end: 20100910
  14. POTASSIUM PHOSPHATES [Concomitant]
     Indication: PRODUCT USED FOR UNKNOWN INDICATION
     Dosage: 1000 MG, TID
     Route: 048
     Dates: start: 20110128, end: 20110131
  15. BACTRIM [Concomitant]
     Indication: PRODUCT USED FOR UNKNOWN INDICATION
     Dosage: 1 TAB, EVERY MON, WED AND FRI
     Route: 048
     Dates: start: 20110128, end: 20110131
  16. M-VIT [Concomitant]
     Indication: PRODUCT USED FOR UNKNOWN INDICATION
     Dosage: UNK
     Route: 048
  17. MYCOPHENOLATE MOFETIL (CELLCEPT) [Concomitant]
     Dosage: 1500 MG, BID
     Route: 048
     Dates: start: 20110131, end: 20110131
  18. NEXIUM [Concomitant]
     Indication: PRODUCT USED FOR UNKNOWN INDICATION
     Dosage: 40 MG, QD
     Route: 048
     Dates: start: 20110131, end: 20110131
  19. HEPARIN [Concomitant]
     Indication: PRODUCT USED FOR UNKNOWN INDICATION
     Dosage: 5000 UNITS, EVERY EIGHT HOURS
     Route: 058
     Dates: start: 20110128, end: 20110131
  20. CATAPRES [Concomitant]
     Indication: PRODUCT USED FOR UNKNOWN INDICATION
     Dosage: 0.3 MG/ 24 HR
     Route: 065
  21. CARDURA [Concomitant]
     Indication: PRODUCT USED FOR UNKNOWN INDICATION
     Dosage: 4 MG, EVERY MORNING
     Route: 048
     Dates: start: 20110129, end: 20110131
  22. PROGRAF [Concomitant]
     Dosage: 5 MG, ONCE
     Route: 048
     Dates: start: 20110128, end: 20110131
  23. ZOFRAN [Concomitant]
     Dosage: 4 MG, PRN
     Route: 042
     Dates: start: 20110128, end: 20110131
  24. SODIUM CHLORIDE [Concomitant]
     Dosage: 125 ML/HR, CONTINUOUS
     Route: 042
     Dates: start: 20110128, end: 20110128
  25. NORVASC [Concomitant]
     Indication: PRODUCT USED FOR UNKNOWN INDICATION
     Dosage: 10 MG BY MOUTH EVERY MORNING
     Route: 048
     Dates: start: 20110129, end: 20110131
  26. MAGNESIUM SULFATE [Concomitant]
     Indication: PRODUCT USED FOR UNKNOWN INDICATION
     Dosage: 1 G, EVERY HOUR
     Route: 042
     Dates: start: 20110129, end: 20110129
  27. SOLU-MEDROL [Concomitant]
     Indication: PRODUCT USED FOR UNKNOWN INDICATION
     Dosage: UNK
     Route: 042
     Dates: start: 20110128, end: 20110128
  28. SODIUM CHLORIDE [Concomitant]
     Indication: PRODUCT USED FOR UNKNOWN INDICATION
     Dosage: 1000 ML, ONCE
     Route: 042
     Dates: start: 20110128, end: 20110128

REACTIONS (3)
  - INFLUENZA [None]
  - LIPASE INCREASED [None]
  - AMYLASE INCREASED [None]
